FAERS Safety Report 24774934 (Version 1)
Quarter: 2024Q4

REPORT INFORMATION
  Report Type: Spontaneous
  Country: PT (occurrence: PT)
  Receive Date: 20241226
  Receipt Date: 20241226
  Transmission Date: 20250115
  Serious: Yes (Hospitalization, Other)
  Sender: AUROBINDO
  Company Number: PT-PFM-2019-06372

PATIENT
  Age: 12 Year
  Sex: Female

DRUGS (10)
  1. ISOTRETINOIN [Suspect]
     Active Substance: ISOTRETINOIN
     Indication: Dermatosis
     Dosage: UNK
     Route: 048
  2. ISOTRETINOIN [Suspect]
     Active Substance: ISOTRETINOIN
     Indication: Psoriasis
     Dosage: UNK
     Route: 065
  3. ISOTRETINOIN [Suspect]
     Active Substance: ISOTRETINOIN
     Dosage: UNKNOWN
     Route: 048
     Dates: start: 201502
  4. METHOXSALEN [Suspect]
     Active Substance: METHOXSALEN
     Indication: Dermatosis
     Dosage: 29.5J/CM2
     Route: 048
  5. METHOXSALEN [Suspect]
     Active Substance: METHOXSALEN
     Indication: Psoriasis
     Dosage: 1.5J/CM2
     Route: 048
  6. METHOXSALEN [Suspect]
     Active Substance: METHOXSALEN
     Dosage: 9J/CM2
     Route: 048
  7. HUMAN PAPILLOMAVIRUS QUADRIVALENT (TYPES 6, 11, 16, AND 18) VACCINE, R [Suspect]
     Active Substance: HUMAN PAPILLOMAVIRUS QUADRIVALENT (TYPES 6, 11, 16, AND 18) VACCINE, RECOMBINANT
     Indication: Prophylaxis
     Dosage: UNK
     Route: 065
  8. PSORALEN [Suspect]
     Active Substance: PSORALEN
     Indication: Psoriasis
     Dosage: UNK
     Route: 065
  9. PSORALEN [Suspect]
     Active Substance: PSORALEN
     Indication: Dermatosis
     Dosage: UNK
     Route: 061
     Dates: start: 201502
  10. PSORALEN [Concomitant]
     Active Substance: PSORALEN
     Indication: Product used for unknown indication
     Dosage: UNK
     Route: 061
     Dates: start: 201502

REACTIONS (31)
  - Pyrexia [Recovered/Resolved]
  - Butterfly rash [Recovered/Resolved]
  - Scab [Recovered/Resolved]
  - Lymphadenopathy [Recovered/Resolved]
  - Alopecia [Recovered/Resolved]
  - Lymphomatoid papulosis [Unknown]
  - Folliculitis [Unknown]
  - Glomerulonephritis [Unknown]
  - Lymphocytic infiltration [Unknown]
  - Skin ulcer [Unknown]
  - Acanthosis [Unknown]
  - Leukopenia [Unknown]
  - Pruritus [Unknown]
  - Proteinuria [Unknown]
  - Corneal abscess [Unknown]
  - Pustule [Unknown]
  - Skin hypopigmentation [Unknown]
  - Dermatitis psoriasiform [Unknown]
  - Rash erythematous [Unknown]
  - Chronic cutaneous lupus erythematosus [Unknown]
  - Neutropenia [Unknown]
  - Systemic lupus erythematosus [Unknown]
  - Oedema [Unknown]
  - Skin erosion [Unknown]
  - Rash papulosquamous [Unknown]
  - Hyperkeratosis [Unknown]
  - Subcorneal pustular dermatosis [Unknown]
  - Skin lesion [Unknown]
  - Weight decreased [Unknown]
  - Product use in unapproved indication [Unknown]
  - Off label use [Unknown]

NARRATIVE: CASE EVENT DATE: 20120401
